FAERS Safety Report 8440240-8 (Version None)
Quarter: 2012Q2

REPORT INFORMATION
  Report Type: 
  Country: None (occurrence: None)
  Receive Date: 20120615
  Receipt Date: 20120607
  Transmission Date: 20120825
  Serious: Yes (Death, Hospitalization)
  Sender: FDA-Public Use
  Company Number: HK-ROCHE-1076875

PATIENT
  Sex: Female
  Weight: 73.3 kg

DRUGS (4)
  1. AVASTIN [Suspect]
     Indication: METASTATIC RENAL CELL CARCINOMA
     Route: 042
     Dates: start: 20090520, end: 20100405
  2. ROFERON-A [Suspect]
     Dates: start: 20100503, end: 20100514
  3. ROFERON-A [Suspect]
     Indication: METASTATIC RENAL CELL CARCINOMA
     Route: 058
     Dates: start: 20090520, end: 20100405
  4. AVASTIN [Suspect]
     Route: 042
     Dates: start: 20100503, end: 20100514

REACTIONS (4)
  - DISEASE PROGRESSION [None]
  - ANAEMIA [None]
  - DRUG INEFFECTIVE [None]
  - METASTASES TO BONE [None]
